FAERS Safety Report 8343007-4 (Version None)
Quarter: 2012Q2

REPORT INFORMATION
  Report Type: 
  Country: None (occurrence: None)
  Receive Date: 20120508
  Receipt Date: 20120430
  Transmission Date: 20120825
  Serious: Yes (Other)
  Sender: FDA-Public Use
  Company Number: PHHY2012GR037431

PATIENT
  Age: 58 Year
  Sex: Male

DRUGS (8)
  1. SANDOSTATIN LAR [Suspect]
     Dosage: 60 MG ONCE IN EVERY 14 DAYS
  2. SANDOSTATIN LAR [Suspect]
     Dosage: 30 MG ONCE IN EVERY 14 DAYS
  3. INTERFERON ALFA [Concomitant]
     Dosage: 50-80 UG WEEKLY
  4. SANDOSTATIN LAR [Suspect]
     Dosage: 60 MG ONCE IN 14 DAYS
  5. EVEROLIMUS [Concomitant]
  6. BEVACIZUMAB [Concomitant]
  7. SANDOSTATIN LAR [Suspect]
     Dosage: 30 MG ONCE IN 21 DAYS
  8. SANDOSTATIN LAR [Suspect]
     Indication: PANCREATIC NEUROENDOCRINE TUMOUR
     Dosage: 20 MG IN EVERY 28 DAYS

REACTIONS (14)
  - DIABETES MELLITUS [None]
  - ABDOMINAL PAIN [None]
  - CONDITION AGGRAVATED [None]
  - PARATHYROID HORMONE-RELATED PROTEIN INCREASED [None]
  - BROWN TUMOUR [None]
  - CALCIUM IONISED INCREASED [None]
  - DEPRESSION [None]
  - HYPERCALCAEMIA [None]
  - MUSCULAR WEAKNESS [None]
  - BLOOD PARATHYROID HORMONE DECREASED [None]
  - MYOPATHY [None]
  - HYPOPHOSPHATAEMIA [None]
  - NEOPLASM MALIGNANT [None]
  - BONE LESION [None]
